FAERS Safety Report 8143741-5 (Version None)
Quarter: 2012Q1

REPORT INFORMATION
  Report Type: 
  Country: None (occurrence: None)
  Receive Date: 20120217
  Receipt Date: 20120210
  Transmission Date: 20120608
  Serious: Yes (Other)
  Sender: FDA-Public Use
  Company Number: US-BAYER-2011-048074

PATIENT
  Age: 27 Year
  Sex: Female
  Weight: 50 kg

DRUGS (8)
  1. SEROQUEL [Concomitant]
     Dosage: 200 MG, UNK
     Dates: start: 20090920
  2. ALBUTEROL [Concomitant]
     Indication: DYSPNOEA
     Dosage: 2 PUFF(S), PRN
     Route: 055
     Dates: start: 20091028
  3. MUSCLE RELAXANT [Concomitant]
     Dosage: 0.05 MG, BID
     Dates: start: 20091028
  4. YAZ [Suspect]
     Indication: CONTRACEPTION
     Dosage: UNK
     Dates: start: 20090101, end: 20090101
  5. NSAID'S [Concomitant]
     Dosage: UNK
     Dates: start: 20000101
  6. MIGRAINE MEDICATION [Concomitant]
     Indication: MIGRAINE
     Dosage: UNK
     Dates: start: 20090920
  7. HYDROCODONE [Concomitant]
     Indication: PAIN
     Dosage: UNK UNK, PRN
     Dates: start: 20091028
  8. TRAZODONE HYDROCHLORIDE [Concomitant]
     Dosage: 150 MG, UNK
     Dates: start: 20090920

REACTIONS (7)
  - GALLBLADDER DISORDER [None]
  - INJURY [None]
  - BILIARY COLIC [None]
  - ANHEDONIA [None]
  - PAIN [None]
  - ANXIETY [None]
  - BILE DUCT STONE [None]
